FAERS Safety Report 12444786 (Version 1)
Quarter: 2016Q2

REPORT INFORMATION
  Report Type: Spontaneous
  Country: CA (occurrence: CA)
  Receive Date: 20160607
  Receipt Date: 20160607
  Transmission Date: 20160815
  Serious: Yes (Hospitalization)
  Sender: FDA-Public Use
  Company Number: CA-ASTRAZENECA-2016SE58467

PATIENT
  Age: 23992 Day
  Sex: Female

DRUGS (7)
  1. ALMOTEC [Concomitant]
  2. SYNTHROID [Concomitant]
     Active Substance: LEVOTHYROXINE SODIUM
     Dosage: 7.5UG UNKNOWN
  3. HCT [Concomitant]
     Active Substance: HYDROCHLOROTHIAZIDE
  4. BRILINTA [Suspect]
     Active Substance: TICAGRELOR
     Indication: ANTICOAGULANT THERAPY
     Route: 048
     Dates: start: 20150521, end: 20160525
  5. BISOPROLOL [Concomitant]
     Active Substance: BISOPROLOL
  6. LANTUS [Concomitant]
     Active Substance: INSULIN GLARGINE
  7. GABAPENTIN. [Concomitant]
     Active Substance: GABAPENTIN

REACTIONS (6)
  - Pain in extremity [Unknown]
  - Dyspnoea [Recovered/Resolved]
  - Angina unstable [Unknown]
  - Chest pain [Recovered/Resolved]
  - Chest discomfort [Recovered/Resolved]
  - Vascular stent restenosis [Unknown]

NARRATIVE: CASE EVENT DATE: 20150925
